FAERS Safety Report 9514788 (Version 1)
Quarter: 2013Q3

REPORT INFORMATION
  Report Type: Spontaneous
  Country: GB (occurrence: GB)
  Receive Date: 20130911
  Receipt Date: 20130911
  Transmission Date: 20140515
  Serious: Yes (Hospitalization, Other)
  Sender: FDA-Public Use
  Company Number: GB-ACCORD-019369

PATIENT
  Age: 14 Year
  Sex: Female
  Weight: 45 kg

DRUGS (2)
  1. CLONAZEPAM [Suspect]
     Indication: AGGRESSION
     Route: 030
  2. LORAZEPAM [Concomitant]
     Route: 048

REACTIONS (5)
  - Respiratory arrest [Recovering/Resolving]
  - Sedation [Recovered/Resolved]
  - Lip swelling [Recovered/Resolved]
  - Lip blister [Recovered/Resolved]
  - Off label use [Unknown]
